FAERS Safety Report 25135579 (Version 1)
Quarter: 2025Q1

REPORT INFORMATION
  Report Type: Spontaneous
  Country: US (occurrence: US)
  Receive Date: 20250328
  Receipt Date: 20250328
  Transmission Date: 20250409
  Serious: Yes (Other)
  Sender: PROACTIV
  Company Number: US-The Proactiv LLC-2173844

PATIENT

DRUGS (5)
  1. PROACTIV ACNE CLEARING BODY [Suspect]
     Active Substance: SALICYLIC ACID
  2. COSMETICS [Suspect]
     Active Substance: COSMETICS
  3. Proactiv MD Adapalene Gel 0.1% Paraben Free [Concomitant]
  4. COSMETICS [Suspect]
     Active Substance: COSMETICS
  5. COSMETICS [Suspect]
     Active Substance: COSMETICS

REACTIONS (1)
  - Skin cancer [Unknown]
